FAERS Safety Report 11795320 (Version 1)
Quarter: 2015Q4

REPORT INFORMATION
  Report Type: Spontaneous
  Country: ES (occurrence: ES)
  Receive Date: 20151202
  Receipt Date: 20151202
  Transmission Date: 20160305
  Serious: Yes (Hospitalization)
  Sender: FDA-Public Use
  Company Number: ES-009507513-1504ESP012261

PATIENT
  Age: 69 Year
  Sex: Male

DRUGS (1)
  1. MK-3009 [Suspect]
     Active Substance: DAPTOMYCIN
     Dosage: UNK UNK, UNK
     Dates: start: 20120810, end: 20120816

REACTIONS (2)
  - Pruritus [Recovered/Resolved]
  - Toxic skin eruption [Recovered/Resolved]

NARRATIVE: CASE EVENT DATE: 20120810
